FAERS Safety Report 13788639 (Version 1)
Quarter: 2017Q3

REPORT INFORMATION
  Report Type: Spontaneous
  Country: IT (occurrence: IT)
  Receive Date: 20170725
  Receipt Date: 20170725
  Transmission Date: 20171127
  Serious: Yes (Life-Threatening)
  Sender: FDA-Public Use
  Company Number: IT-ASTRAZENECA-2017SE73773

PATIENT
  Age: 30196 Day
  Sex: Male
  Weight: 75 kg

DRUGS (1)
  1. CASODEX [Suspect]
     Active Substance: BICALUTAMIDE
     Indication: PROSTATE CANCER
     Route: 048
     Dates: start: 20160901, end: 20170501

REACTIONS (4)
  - Asthenia [Recovering/Resolving]
  - Haemoglobin decreased [Recovering/Resolving]
  - Gait disturbance [Recovering/Resolving]
  - Red blood cell count decreased [Recovering/Resolving]

NARRATIVE: CASE EVENT DATE: 20170101
